FAERS Safety Report 23283766 (Version 3)
Quarter: 2025Q1

REPORT INFORMATION
  Report Type: Spontaneous
  Country: US (occurrence: US)
  Receive Date: 20231211
  Receipt Date: 20250331
  Transmission Date: 20250408
  Serious: No
  Sender: PFIZER
  Company Number: US-PFIZER INC-PV202300094192

PATIENT
  Age: 72 Year
  Sex: Male

DRUGS (12)
  1. XELJANZ XR [Suspect]
     Active Substance: TOFACITINIB CITRATE
     Dosage: UNK, DAILY
  2. XELJANZ XR [Suspect]
     Active Substance: TOFACITINIB CITRATE
  3. TYLENOL [Concomitant]
     Active Substance: ACETAMINOPHEN
  4. ALBUTEROL [Concomitant]
     Active Substance: ALBUTEROL
  5. VITAMIN C [Concomitant]
     Active Substance: ASCORBIC ACID
  6. ATORVASTATIN [Concomitant]
     Active Substance: ATORVASTATIN
  7. OMEGA-3 FATTY ACIDS [Concomitant]
     Active Substance: OMEGA-3 FATTY ACIDS
  8. DICLOFENAC [Concomitant]
     Active Substance: DICLOFENAC
  9. DILTIAZEM [Concomitant]
     Active Substance: DILTIAZEM
  10. FLONASE [Concomitant]
     Active Substance: FLUTICASONE PROPIONATE
  11. GLUCOSAMINE [Concomitant]
     Active Substance: GLUCOSAMINE
  12. LATANOPROST [Concomitant]
     Active Substance: LATANOPROST

REACTIONS (4)
  - Off label use [Unknown]
  - Sinusitis [Unknown]
  - Bladder disorder [Unknown]
  - Product dose omission in error [Unknown]
